FAERS Safety Report 16406441 (Version 1)
Quarter: 2019Q2

REPORT INFORMATION
  Report Type: Report from Study
  Country: US (occurrence: US)
  Receive Date: 20190607
  Receipt Date: 20190607
  Transmission Date: 20190711
  Serious: Yes (Hospitalization)
  Sender: FDA-Public Use
  Company Number: US-EISAI MEDICAL RESEARCH-EC-2019-056569

PATIENT
  Age: 59 Year
  Sex: Male

DRUGS (5)
  1. PRINIVIL [Concomitant]
     Active Substance: LISINOPRIL
  2. LENVIMA [Suspect]
     Active Substance: LENVATINIB
     Indication: RENAL CANCER
     Route: 048
     Dates: start: 20190509
  3. CARDIZEM CD [Concomitant]
     Active Substance: DILTIAZEM HYDROCHLORIDE
  4. HYDRALAZINE [Concomitant]
     Active Substance: HYDRALAZINE HYDROCHLORIDE
  5. AFINITOR DISPERZ [Concomitant]
     Active Substance: EVEROLIMUS

REACTIONS (7)
  - Hypertension [Unknown]
  - Arthralgia [Unknown]
  - Nausea [Unknown]
  - Bone pain [Unknown]
  - Decreased appetite [Unknown]
  - Pancreatitis [Unknown]
  - Fatigue [Unknown]

NARRATIVE: CASE EVENT DATE: 201905
